FAERS Safety Report 22842875 (Version 2)
Quarter: 2023Q4

REPORT INFORMATION
  Report Type: Spontaneous
  Country: CO (occurrence: CO)
  Receive Date: 20230821
  Receipt Date: 20231228
  Transmission Date: 20240110
  Serious: Yes (Hospitalization)
  Sender: FDA-Public Use
  Company Number: CO-ROCHE-3403009

PATIENT
  Age: 57 Year
  Sex: Female

DRUGS (9)
  1. CAPECITABINE [Suspect]
     Active Substance: CAPECITABINE
     Indication: Neoplasm malignant
     Route: 048
     Dates: start: 20221014, end: 20230106
  2. LEVOTHYROXINE [Concomitant]
     Active Substance: LEVOTHYROXINE
     Indication: Thyroidectomy
     Dosage: DAILY DOSE: 100 MICROGRAM
  3. ACETAMINOPHEN [Concomitant]
     Active Substance: ACETAMINOPHEN
     Indication: Cancer pain
     Dates: start: 202201
  4. HYDROMORPHONE [Concomitant]
     Active Substance: HYDROMORPHONE
     Indication: Cancer pain
     Dosage: 2 MG/ML,0.40MG
     Route: 042
     Dates: start: 20230317, end: 20230328
  5. BUTYLSCOPOLAMINE BROMIDE [Concomitant]
     Active Substance: BUTYLSCOPOLAMINE BROMIDE
     Indication: Pain
     Dosage: 20 MG/ML
     Dates: start: 20230318, end: 20230328
  6. LACTULOSE [Concomitant]
     Active Substance: LACTULOSE
     Indication: Constipation
     Dosage: 3.34GR/5ML (66.7%)
     Dates: start: 20230319, end: 20230328
  7. OMEPRAZOLE [Concomitant]
     Active Substance: OMEPRAZOLE
     Indication: Gastrointestinal disorder prophylaxis
     Route: 042
     Dates: start: 20230317, end: 20230328
  8. ONDANSETRON [Concomitant]
     Active Substance: ONDANSETRON
     Indication: Gastrointestinal disorder prophylaxis
     Dosage: 8MG/4ML(2MG/ML)
     Dates: start: 20230317, end: 20230328
  9. SUCRALFATE [Concomitant]
     Active Substance: SUCRALFATE
     Indication: Gastrointestinal disorder prophylaxis
     Dosage: 1GR/5ML
     Route: 048
     Dates: start: 20230317, end: 20230328

REACTIONS (3)
  - Pancreatitis necrotising [Recovered/Resolved]
  - Hypoperfusion [Recovered/Resolved]
  - Product use in unapproved indication [Unknown]

NARRATIVE: CASE EVENT DATE: 20221014
